FAERS Safety Report 4844362-X (Version None)
Quarter: 2005Q4

REPORT INFORMATION
  Report Type: 
  Country: None (occurrence: None)
  Receive Date: 20051202
  Receipt Date: 20051107
  Transmission Date: 20060501
  Serious: Yes (Hospitalization, Disabling, Other)
  Sender: FDA-Public Use
  Company Number: US-MERCK-0511USA01145

PATIENT
  Age: 58 Year
  Sex: Female
  Weight: 59 kg

DRUGS (10)
  1. VIOXX [Suspect]
     Indication: RHEUMATOID ARTHRITIS
     Route: 048
     Dates: start: 19990601, end: 20011001
  2. CELEXA [Concomitant]
     Route: 065
  3. PREMARIN [Concomitant]
     Route: 065
  4. AMBIEN [Concomitant]
     Route: 065
  5. METHOTREXATE [Concomitant]
     Route: 065
  6. PRILOSEC [Concomitant]
     Route: 065
  7. KLONOPIN [Concomitant]
     Route: 065
  8. NITROGLYCERIN [Concomitant]
     Route: 065
  9. PLAQUENIL [Concomitant]
     Route: 065
  10. WELLBUTRIN [Concomitant]
     Route: 065

REACTIONS (17)
  - ACTIVITIES OF DAILY LIVING IMPAIRED [None]
  - ANXIETY [None]
  - CEREBROVASCULAR ACCIDENT [None]
  - CHEST PAIN [None]
  - CORONARY ARTERY OCCLUSION [None]
  - DEPRESSION [None]
  - DYSPNOEA [None]
  - GENERAL SYMPTOM [None]
  - HEADACHE [None]
  - INJURY [None]
  - JOINT SPRAIN [None]
  - MYOCARDIAL INFARCTION [None]
  - NECK PAIN [None]
  - OEDEMA PERIPHERAL [None]
  - PANIC ATTACK [None]
  - RESTLESSNESS [None]
  - ULCER HAEMORRHAGE [None]
